FAERS Safety Report 5062801-9 (Version None)
Quarter: 2006Q3

REPORT INFORMATION
  Report Type: 
  Country: None (occurrence: None)
  Receive Date: 20060724
  Receipt Date: 20060711
  Transmission Date: 20061208
  Serious: Yes (Other)
  Sender: FDA-Public Use
  Company Number: 2006088145

PATIENT
  Age: 43 Year
  Sex: Female

DRUGS (2)
  1. ARTHROTEC [Suspect]
     Indication: TENDONITIS
     Dosage: 75 MG 75 MG, FREQUENCY: QD), ORAL
     Route: 048
     Dates: end: 20060701
  2. LEVOTHYROXINE SODIUM [Concomitant]

REACTIONS (3)
  - UTERINE HAEMORRHAGE [None]
  - UTERINE LEIOMYOMA [None]
  - UTERINE SPASM [None]
